FAERS Safety Report 18554502 (Version 3)
Quarter: 2022Q4

REPORT INFORMATION
  Report Type: Report from Study
  Country: IT (occurrence: None)
  Receive Date: 20201127
  Receipt Date: 20221014
  Transmission Date: 20230113
  Serious: Yes (Hospitalization)
  Sender: FDA-Public Use
  Company Number: IT-ROCHE-2717042

PATIENT
  Age: 60 Year
  Sex: Male
  Weight: 72 kg

DRUGS (5)
  1. FLUOROURACIL [Suspect]
     Active Substance: FLUOROURACIL
     Indication: Colorectal cancer metastatic
     Dosage: ON 23/OCT/2020, THE PATIENT RECEIVED MOST RECENT DOSE 4368 MG PRIOR TO AE.?HE RECEIVED 29 CYCLE.
     Route: 042
     Dates: start: 20190719
  2. OXALIPLATIN [Suspect]
     Active Substance: OXALIPLATIN
     Indication: Product used for unknown indication
     Dosage: DATE OF MOST RECENT DOSE PRIOR TO SAE WAS ON 29/OCT/2019. NO OF CYCLE PRIOR TO SAE IS 8 CYCLE.
     Route: 042
     Dates: start: 20190719
  3. IRINOTECAN [Suspect]
     Active Substance: IRINOTECAN
     Indication: Product used for unknown indication
     Dosage: DATE OF MOST RECENT ADMINISTRATION PRIOR TO SAE WAS ON 29/OCT/2019.
     Route: 042
     Dates: start: 20190719
  4. BEVACIZUMAB [Suspect]
     Active Substance: BEVACIZUMAB
     Indication: Colorectal cancer metastatic
     Dosage: ON 23/OCT/2020, THE PATIENT RECEIVED MOST RECENT DOSE 360 MG PRIOR TO AE.?SHE RECEIVED 28 CYCLE.
     Route: 042
     Dates: start: 20190719, end: 20201113
  5. ATEZOLIZUMAB [Suspect]
     Active Substance: ATEZOLIZUMAB
     Indication: Colorectal cancer metastatic
     Dosage: ON 23/OCT/2020, THE PATIENT RECEIVED MOST RECENT DOSE 840 MG PRIOR TO AE.?SHE RECEIVED 29 CYCLE.
     Route: 042
     Dates: start: 20190719

REACTIONS (1)
  - Abscess [Recovered/Resolved]

NARRATIVE: CASE EVENT DATE: 20201113
